FAERS Safety Report 8999235 (Version 1)
Quarter: 2013Q1

REPORT INFORMATION
  Report Type: Spontaneous
  Country: IL (occurrence: IL)
  Receive Date: 20130103
  Receipt Date: 20130103
  Transmission Date: 20140127
  Serious: Yes (Hospitalization)
  Sender: FDA-Public Use
  Company Number: PHHY2012IL060598

PATIENT
  Age: 82 Year
  Sex: Female
  Weight: 80 kg

DRUGS (3)
  1. SANDOSTATIN LAR [Suspect]
     Indication: CARCINOID TUMOUR
     Dosage: 50 MG, EVERY 28 DAYS
     Dates: start: 20090712
  2. SANDOSTATIN LAR [Suspect]
     Dosage: 60 MG, EVERY 4 WEEKS
  3. SANDOSTATIN LAR [Suspect]
     Dosage: 60 MG, EVERY 4 WEEKS
     Dates: start: 20121203

REACTIONS (5)
  - Chills [Unknown]
  - Haematochezia [Unknown]
  - Syncope [Recovered/Resolved]
  - Dehydration [Recovering/Resolving]
  - Diarrhoea [Recovering/Resolving]
